FAERS Safety Report 8202836-8 (Version None)
Quarter: 2012Q1

REPORT INFORMATION
  Report Type: 
  Country: None (occurrence: None)
  Receive Date: 20120312
  Receipt Date: 20120312
  Transmission Date: 20120608
  Serious: No
  Sender: FDA-Public Use
  Company Number: None

PATIENT
  Sex: Female
  Weight: 48.08 kg

DRUGS (2)
  1. BOTOX [Concomitant]
     Dates: start: 20100428, end: 20100428
  2. BOTOX [Suspect]
     Indication: TORTICOLLIS
     Dates: start: 20100428, end: 20100428

REACTIONS (3)
  - NECK DEFORMITY [None]
  - DROOLING [None]
  - CHOKING [None]
